FAERS Safety Report 19835065 (Version 6)
Quarter: 2022Q1

REPORT INFORMATION
  Report Type: Report from Study
  Country: CN (occurrence: CN)
  Receive Date: 20210915
  Receipt Date: 20220302
  Transmission Date: 20220424
  Serious: Yes (Hospitalization, Other)
  Sender: FDA-Public Use
  Company Number: CN-ASCENDIS PHARMA-2021CN000058

PATIENT

DRUGS (5)
  1. LONAPEGSOMATROPIN [Suspect]
     Active Substance: LONAPEGSOMATROPIN
     Indication: Growth hormone deficiency
     Dosage: 0.17 MILLILITER(3.74MG), WEEKLY
     Route: 058
     Dates: start: 20210323, end: 20210622
  2. LONAPEGSOMATROPIN [Suspect]
     Active Substance: LONAPEGSOMATROPIN
     Dosage: 0.17 MILLILITER(3.74MG), WEEKLY
     Route: 058
     Dates: start: 20210803, end: 20210810
  3. HYDROCORTISONE BUTYRATE [Concomitant]
     Active Substance: HYDROCORTISONE BUTYRATE
     Indication: Dermatitis allergic
     Dosage: 1 GRAM, BID
     Route: 003
     Dates: start: 20210618, end: 20210823
  4. CETIRIZINE HYDROCHLORIDE [Concomitant]
     Active Substance: CETIRIZINE HYDROCHLORIDE
     Indication: Dermatitis allergic
     Dosage: 0.25 MILLILITER, BID
     Route: 048
     Dates: start: 20210612, end: 20210823
  5. FUSIDIC ACID [Concomitant]
     Active Substance: FUSIDIC ACID
     Indication: Dermatitis allergic
     Dosage: 1 GRAM, BID
     Route: 003
     Dates: start: 20210618, end: 20210823

REACTIONS (2)
  - Dermatitis allergic [Recovering/Resolving]
  - Subcutaneous abscess [Recovered/Resolved]

NARRATIVE: CASE EVENT DATE: 20210612
